FAERS Safety Report 6389055-5 (Version None)
Quarter: 2009Q4

REPORT INFORMATION
  Report Type: 
  Country: None (occurrence: None)
  Receive Date: 20091001
  Receipt Date: 20090918
  Transmission Date: 20100525
  Serious: Yes (Death)
  Sender: FDA-Public Use
  Company Number: 2009PL000279

PATIENT
  Sex: Female

DRUGS (1)
  1. LOTRONEX [Suspect]
     Dates: end: 20000101

REACTIONS (1)
  - COLITIS ISCHAEMIC [None]
